FAERS Safety Report 6417604-7 (Version None)
Quarter: 2009Q4

REPORT INFORMATION
  Report Type: 
  Country: None (occurrence: None)
  Receive Date: 20091028
  Receipt Date: 20091022
  Transmission Date: 20100525
  Serious: Yes (Hospitalization)
  Sender: FDA-Public Use
  Company Number: CH-ROCHE-664166

PATIENT
  Age: 83 Year
  Sex: Female

DRUGS (8)
  1. ROCEPHIN [Suspect]
     Indication: DIVERTICULITIS
     Route: 041
     Dates: start: 20090710, end: 20090713
  2. ACETAMINOPHEN [Suspect]
     Indication: DRUG USE FOR UNKNOWN INDICATION
     Dosage: DRUG NAME: DAFALGAN ODIS
     Route: 048
     Dates: end: 20090713
  3. BAYPRESS [Suspect]
     Indication: DRUG USE FOR UNKNOWN INDICATION
     Route: 048
     Dates: end: 20090713
  4. FLAGYL [Suspect]
     Indication: DIVERTICULITIS
     Dosage: STOP DATE: 13 JULY 2009
     Route: 048
     Dates: start: 20090701
  5. CIPROFLOXACIN HYDROCHLORIDE [Concomitant]
     Route: 048
     Dates: start: 20090707, end: 20090709
  6. NEXIUM [Concomitant]
     Route: 048
     Dates: start: 20090710
  7. CLEXANE [Concomitant]
     Route: 058
     Dates: start: 20090710, end: 20090713
  8. ADALAT [Concomitant]
     Route: 048
     Dates: start: 20090711, end: 20090711

REACTIONS (1)
  - HEPATOCELLULAR INJURY [None]
